FAERS Safety Report 6007890-X (Version None)
Quarter: 2008Q4

REPORT INFORMATION
  Report Type: 
  Country: None (occurrence: None)
  Receive Date: 20081217
  Receipt Date: 20080709
  Transmission Date: 20090506
  Serious: No
  Sender: FDA-Public Use
  Company Number: US-ASTRAZENECA-2008UW13788

PATIENT
  Age: 57 Year
  Sex: Male
  Weight: 99.8 kg

DRUGS (6)
  1. CRESTOR [Suspect]
     Route: 048
     Dates: start: 20080630
  2. CRESTOR [Suspect]
     Route: 048
  3. AMBIEN [Concomitant]
  4. LAMICTAL [Concomitant]
  5. XANAX [Concomitant]
  6. OXYCONTIN [Concomitant]

REACTIONS (3)
  - DRY MOUTH [None]
  - PRURITUS [None]
  - SWELLING [None]
